FAERS Safety Report 6140910-0 (Version None)
Quarter: 2009Q2

REPORT INFORMATION
  Report Type: 
  Country: None (occurrence: None)
  Receive Date: 20090402
  Receipt Date: 20080602
  Transmission Date: 20091009
  Serious: No
  Sender: FDA-Public Use
  Company Number: US-KINGPHARMUSA00001-K200800628

PATIENT
  Sex: Male
  Weight: 74.83 kg

DRUGS (2)
  1. SKELAXIN [Suspect]
     Indication: BACK PAIN
     Dosage: 800 MG, Q8H PRN
     Route: 048
     Dates: start: 20080206, end: 20080201
  2. HYZAAR [Concomitant]
     Indication: HYPERTENSION
     Dosage: 100/25 QD

REACTIONS (1)
  - DRUG INEFFECTIVE [None]
